FAERS Safety Report 5905933-2 (Version None)
Quarter: 2008Q4

REPORT INFORMATION
  Report Type: 
  Country: None (occurrence: None)
  Receive Date: 20081001
  Receipt Date: 20081001
  Transmission Date: 20090506
  Serious: Yes (Life-Threatening, Hospitalization, Other)
  Sender: FDA-Public Use
  Company Number: None

PATIENT
  Age: 28 Year
  Sex: Female
  Weight: 117.9352 kg

DRUGS (1)
  1. TRINESSA CONTROL # 20071008167 JOHNSON + JOHNSON [Suspect]
     Indication: CONTRACEPTION
     Dosage: 1 PILL 1 X PER DAY PO
     Route: 048
     Dates: start: 20070327, end: 20070418

REACTIONS (5)
  - DRUG EFFECT DECREASED [None]
  - MENORRHAGIA [None]
  - PRODUCT QUALITY ISSUE [None]
  - SENSORY LOSS [None]
  - THROMBOSIS [None]
